FAERS Safety Report 7967086-9 (Version None)
Quarter: 2011Q4

REPORT INFORMATION
  Report Type: 
  Country: None (occurrence: None)
  Receive Date: 20111209
  Receipt Date: 20111130
  Transmission Date: 20120403
  Serious: Yes (Hospitalization)
  Sender: FDA-Public Use
  Company Number: JP-JNJFOC-20111201543

PATIENT
  Age: 66 Year
  Sex: Female

DRUGS (6)
  1. VALPROATE SODIUM [Concomitant]
     Indication: PRODUCT USED FOR UNKNOWN INDICATION
     Route: 065
  2. LITHIUM [Concomitant]
     Dosage: 400 TO 800 MG PER V B DAY IN THE LONG TERM
     Route: 065
  3. RISPERDAL [Suspect]
     Indication: PSYCHOTIC DISORDER
     Route: 048
  4. ZOTEPINE [Suspect]
     Indication: PSYCHOTIC DISORDER
     Route: 065
  5. LITHIUM [Concomitant]
     Indication: PRODUCT USED FOR UNKNOWN INDICATION
     Dosage: 600 TO 1200 MG PER DAY
     Route: 065
  6. LITHIUM [Concomitant]
     Dosage: ON ADMISSION 800 MG WAS PRESCRIBED
     Route: 065

REACTIONS (4)
  - PYREXIA [None]
  - DEPRESSED LEVEL OF CONSCIOUSNESS [None]
  - PNEUMONIA [None]
  - HYPERNATRAEMIA [None]
